FAERS Safety Report 8533611-2 (Version None)
Quarter: 2012Q3

REPORT INFORMATION
  Report Type: 
  Country: None (occurrence: None)
  Receive Date: 20120717
  Receipt Date: 20120717
  Transmission Date: 20120928
  Serious: Yes (Other)
  Sender: FDA-Public Use
  Company Number: None

PATIENT
  Age: 72 Year
  Sex: Male
  Weight: 96 kg

DRUGS (14)
  1. GLIPIZIDE [Concomitant]
  2. ENOXAPARIN SODIUM [Suspect]
     Indication: THROMBOSIS PROPHYLAXIS
     Dosage: 40 MG DAILY SQ
     Route: 058
     Dates: start: 20111123, end: 20111203
  3. LACTULOSE [Concomitant]
  4. NITROGLYCERIN [Concomitant]
  5. HYDROCODONE BITARTRATE + ACETAMINOPHEN [Concomitant]
  6. ALBUTEROL [Concomitant]
  7. ALBUTEROL SULFATE AND IPRATROPIUM BROMIDE [Concomitant]
  8. DIGOXIN [Concomitant]
  9. ALLOPURINOL [Concomitant]
  10. METOLAZONE [Concomitant]
  11. CLOPIDOGREL [Suspect]
     Indication: CORONARY ARTERIAL STENT INSERTION
     Dosage: 75 MG DAILY PO  SINCE PRIOR TO ADMIT
     Route: 048
  12. CLOPIDOGREL [Suspect]
     Indication: ANTIPLATELET THERAPY
     Dosage: 75 MG DAILY PO  SINCE PRIOR TO ADMIT
     Route: 048
  13. PRIMIDONE [Concomitant]
  14. FUROSEMIDE [Concomitant]

REACTIONS (3)
  - CARDIAC FAILURE CONGESTIVE [None]
  - CONDITION AGGRAVATED [None]
  - EPISTAXIS [None]
